FAERS Safety Report 5885002-0 (Version None)
Quarter: 2008Q3

REPORT INFORMATION
  Report Type: 
  Country: None (occurrence: None)
  Receive Date: 20080916
  Receipt Date: 20080912
  Transmission Date: 20090109
  Serious: Yes (Hospitalization)
  Sender: FDA-Public Use
  Company Number: US-ROCHE-585930

PATIENT

DRUGS (6)
  1. NAPROXEN [Suspect]
     Indication: DRUG USE FOR UNKNOWN INDICATION
     Route: 064
     Dates: start: 20070801, end: 20070814
  2. ENBREL [Suspect]
     Indication: DRUG USE FOR UNKNOWN INDICATION
     Route: 064
     Dates: start: 20070629, end: 20080211
  3. ACETAMINOPHEN [Suspect]
     Indication: DRUG USE FOR UNKNOWN INDICATION
     Route: 064
     Dates: start: 20070702
  4. MULTIVITAMIN NOS [Concomitant]
     Route: 064
  5. CORTICOSTEROID NOS [Concomitant]
     Route: 064
     Dates: start: 20071009, end: 20071227
  6. PREDNISONE TAB [Concomitant]
     Route: 064
     Dates: start: 20070805, end: 20071227

REACTIONS (4)
  - PNEUMOMEDIASTINUM [None]
  - PNEUMONIA [None]
  - RESPIRATORY DISTRESS [None]
  - TACHYPNOEA [None]
